FAERS Safety Report 7398806-2 (Version None)
Quarter: 2011Q2

REPORT INFORMATION
  Report Type: 
  Country: None (occurrence: None)
  Receive Date: 20110404
  Receipt Date: 20110404
  Transmission Date: 20111010
  Serious: Yes (Hospitalization)
  Sender: FDA-Public Use
  Company Number: None

PATIENT
  Sex: Male
  Weight: 61.59 kg

DRUGS (5)
  1. RITUXIMAB (MOAB C2B8 ANTI CD20, CHIMERIC) [Suspect]
     Dosage: 611 MG
  2. CYCLOPHOSPHAMIDE [Suspect]
     Dosage: 1222 MG
  3. DOXIL [Suspect]
     Dosage: 49 MG
  4. PREDNISONE [Suspect]
     Dosage: 500 MG
  5. VINCRISTINE SULFATE [Suspect]
     Dosage: 2 MG

REACTIONS (6)
  - GAIT DISTURBANCE [None]
  - BLINDNESS [None]
  - PROGRESSIVE MULTIFOCAL LEUKOENCEPHALOPATHY [None]
  - FATIGUE [None]
  - JC VIRUS TEST POSITIVE [None]
  - PERIPHERAL MOTOR NEUROPATHY [None]
